FAERS Safety Report 9095824 (Version 2)
Quarter: 2013Q1

REPORT INFORMATION
  Report Type: Spontaneous
  Country: BR (occurrence: BR)
  Receive Date: 20130220
  Receipt Date: 20130226
  Transmission Date: 20140127
  Serious: Yes (Death, Other)
  Sender: FDA-Public Use
  Company Number: BR-PFIZER INC-2012331210

PATIENT
  Age: 54 Year
  Sex: Male

DRUGS (3)
  1. SUTENT [Suspect]
     Indication: RENAL CELL CARCINOMA
     Dosage: 50 MG, 1X/DAY
     Route: 048
     Dates: start: 20120921
  2. SUTENT [Suspect]
     Dosage: UNK
     Dates: start: 20121217
  3. MORPHINE [Concomitant]
     Dosage: UNK

REACTIONS (8)
  - Death [Fatal]
  - Haematochezia [Not Recovered/Not Resolved]
  - Disease progression [Unknown]
  - Renal cell carcinoma [Unknown]
  - Constipation [Unknown]
  - Dyspnoea [Unknown]
  - Cold sweat [Unknown]
  - Syncope [Unknown]
